FAERS Safety Report 6056048-7 (Version None)
Quarter: 2009Q1

REPORT INFORMATION
  Report Type: 
  Country: None (occurrence: None)
  Receive Date: 20090126
  Receipt Date: 20090113
  Transmission Date: 20090719
  Serious: Yes (Other)
  Sender: FDA-Public Use
  Company Number: 1000003099

PATIENT
  Age: 99 Year
  Sex: Female

DRUGS (8)
  1. MEMANTINE HCL [Suspect]
     Indication: DEMENTIA ALZHEIMER'S TYPE
     Dosage: 20 MG (20 MG, 1 IN 1 D), ORAL
     Route: 048
     Dates: start: 20040101, end: 20080911
  2. METFORMIN (TABLETS) [Concomitant]
  3. GLIBENKLAMID (TABLETS) [Concomitant]
  4. ASPIRIN [Concomitant]
  5. ALVEDON (TABLETS) [Concomitant]
  6. ATARAX [Concomitant]
  7. ZOPIKLON (TABLETS) [Concomitant]
  8. HERACELLIN [Concomitant]

REACTIONS (11)
  - ALANINE AMINOTRANSFERASE ABNORMAL [None]
  - ANXIETY [None]
  - BLOOD GLUCOSE FLUCTUATION [None]
  - FALL [None]
  - GAMMA-GLUTAMYLTRANSFERASE ABNORMAL [None]
  - JAUNDICE [None]
  - LIVER DISORDER [None]
  - NONSPECIFIC REACTION [None]
  - PRURITUS [None]
  - SKIN INFECTION [None]
  - WEIGHT DECREASED [None]
